FAERS Safety Report 7771951-5 (Version None)
Quarter: 2011Q3

REPORT INFORMATION
  Report Type: 
  Country: None (occurrence: None)
  Receive Date: 20110922
  Receipt Date: 20101015
  Transmission Date: 20111222
  Serious: Yes (Other)
  Sender: FDA-Public Use
  Company Number: US-ASTRAZENECA-2009UW08750

PATIENT
  Age: 35 Year
  Sex: Male
  Weight: 137.9 kg

DRUGS (8)
  1. SEROQUEL [Suspect]
     Indication: SCHIZOPHRENIA
     Dosage: 100 MG TO 1200 MG
     Route: 048
     Dates: start: 20030101, end: 20070101
  2. SEROQUEL [Suspect]
     Indication: BIPOLAR DISORDER
     Dosage: 100 MG TO 1200 MG
     Route: 048
     Dates: start: 20030101, end: 20070101
  3. SEROQUEL [Suspect]
     Indication: DEPRESSION
     Dosage: 100 MG TO 1200 MG
     Route: 048
     Dates: start: 20030101, end: 20070101
  4. SEROQUEL [Suspect]
     Indication: SLEEP DISORDER
     Dosage: 100 MG TO 1200 MG
     Route: 048
     Dates: start: 20030101, end: 20070101
  5. ABILIFY [Concomitant]
     Dosage: 800 MG TO 1200 MG
     Dates: start: 20060907, end: 20070125
  6. GEODON [Concomitant]
     Dosage: 80 TO 160 MG
  7. SEROQUEL [Suspect]
     Indication: SCHIZOAFFECTIVE DISORDER
     Dosage: 100 MG TO 1200 MG
     Route: 048
     Dates: start: 20030101, end: 20070101
  8. RISPERDAL [Concomitant]
     Indication: SCHIZOPHRENIA
     Dosage: 1 TO 6 MG
     Dates: start: 20050801

REACTIONS (8)
  - PANCREATITIS [None]
  - TARDIVE DYSKINESIA [None]
  - TYPE 1 DIABETES MELLITUS [None]
  - BLOOD CHOLESTEROL INCREASED [None]
  - MOVEMENT DISORDER [None]
  - TYPE 2 DIABETES MELLITUS [None]
  - BLOOD TRIGLYCERIDES INCREASED [None]
  - HYPERLIPIDAEMIA [None]
